FAERS Safety Report 20533691 (Version 1)
Quarter: 2022Q1

REPORT INFORMATION
  Report Type: Spontaneous
  Country: US (occurrence: US)
  Receive Date: 20220301
  Receipt Date: 20220301
  Transmission Date: 20220423
  Serious: No
  Sender: FDA-Public Use
  Company Number: US-PFIZER INC-202101871933

PATIENT
  Age: 63 Year
  Sex: Female
  Weight: 58.97 kg

DRUGS (2)
  1. VFEND [Suspect]
     Active Substance: VORICONAZOLE
     Indication: Scopulariopsis infection
     Dosage: 200 MG, 2X/DAY (12 HRS A PART AN HOUR BEFORE EATING)
     Dates: start: 20211230
  2. VFEND [Suspect]
     Active Substance: VORICONAZOLE
     Indication: Lung disorder

REACTIONS (2)
  - Erythema [Not Recovered/Not Resolved]
  - Lip blister [Recovered/Resolved]

NARRATIVE: CASE EVENT DATE: 20220112
